FAERS Safety Report 6829158-1 (Version None)
Quarter: 2010Q3

REPORT INFORMATION
  Report Type: 
  Country: None (occurrence: None)
  Receive Date: 20100709
  Receipt Date: 20070305
  Transmission Date: 20110219
  Serious: No
  Sender: FDA-Public Use
  Company Number: US-PFIZER INC-2007017825

PATIENT
  Age: 53 Year
  Sex: Female

DRUGS (14)
  1. CHANTIX [Suspect]
     Indication: SMOKING CESSATION THERAPY
     Dates: start: 20070101
  2. CITALOPRAM HYDROBROMIDE [Concomitant]
  3. TOPROL-XL [Concomitant]
  4. GLIMEPIRIDE [Concomitant]
  5. VYTORIN [Concomitant]
  6. CARTIA XT [Concomitant]
  7. VALSARTAN [Concomitant]
  8. PLAVIX [Concomitant]
  9. ACETYLSALICYLIC ACID [Concomitant]
  10. VITAMIN C [Concomitant]
  11. ADVAIR DISKUS 100/50 [Concomitant]
  12. ALBUTEROL [Concomitant]
  13. IBUPROFEN [Concomitant]
  14. ALPRAZOLAM [Concomitant]

REACTIONS (3)
  - CONSTIPATION [None]
  - COUGH [None]
  - FLATULENCE [None]
